FAERS Safety Report 24631056 (Version 1)
Quarter: 2024Q4

REPORT INFORMATION
  Report Type: Spontaneous
  Country: US (occurrence: None)
  Receive Date: 20241115
  Receipt Date: 20241115
  Transmission Date: 20250114
  Serious: No
  Sender: Public
  Company Number: None

PATIENT
  Age: 73 Year
  Sex: 0

DRUGS (1)
  1. JAKAFI [Suspect]
     Active Substance: RUXOLITINIB

REACTIONS (2)
  - White blood cell count increased [None]
  - Unevaluable event [None]

NARRATIVE: CASE EVENT DATE: 20241115
